FAERS Safety Report 23645201 (Version 1)
Quarter: 2024Q1

REPORT INFORMATION
  Report Type: Report from Study
  Country: US (occurrence: US)
  Receive Date: 20240318
  Receipt Date: 20240318
  Transmission Date: 20240410
  Serious: No
  Sender: FDA-Public Use
  Company Number: US-ESPERIONTHERAPEUTICS-2023USA00192

PATIENT
  Sex: Male
  Weight: 98.413 kg

DRUGS (2)
  1. BEMPEDOIC ACID\EZETIMIBE [Suspect]
     Active Substance: BEMPEDOIC ACID\EZETIMIBE
     Indication: Blood cholesterol increased
     Dosage: 180/10 MILLIGRAM, QD
     Route: 048
  2. ZETIA [Concomitant]
     Active Substance: EZETIMIBE
     Dosage: UNKNOWN
     Route: 065

REACTIONS (2)
  - Adverse drug reaction [Unknown]
  - Product use issue [Unknown]
